FAERS Safety Report 15357154 (Version 1)
Quarter: 2018Q3

REPORT INFORMATION
  Report Type: Spontaneous
  Country: US (occurrence: US)
  Receive Date: 20180830
  Receipt Date: 20180830
  Transmission Date: 20181010
  Serious: No
  Sender: FDA-Public Use
  Company Number: None

PATIENT
  Age: 61 Year
  Sex: Male

DRUGS (2)
  1. EFAVIRENZ/SUSTIVA [Concomitant]
  2. LAMIVUDINE 150MG/ZIDOVUDI1 NE 300MG TABLET [Suspect]
     Active Substance: LAMIVUDINE\ZIDOVUDINE
     Route: 048
     Dates: start: 20170127

REACTIONS (1)
  - Bone loss [None]

NARRATIVE: CASE EVENT DATE: 20180830
